FAERS Safety Report 10430200 (Version 1)
Quarter: 2014Q3

REPORT INFORMATION
  Report Type: Spontaneous
  Country: US (occurrence: None)
  Receive Date: 20140808
  Receipt Date: 20140808
  Transmission Date: 20150326
  Serious: No
  Sender: FDA-Public Use
  Company Number: US-015435

PATIENT
  Age: 48 Year
  Sex: Female
  Weight: 56.7 kg

DRUGS (1)
  1. PREPOPIK [Suspect]
     Active Substance: ANHYDROUS CITRIC ACID\MAGNESIUM OXIDE\SODIUM PICOSULFATE
     Indication: BOWEL PREPARATION
     Dosage: FIRST PACK 3:30PM AND SECOND PACK 1T 9:30PM ORAL
     Dates: start: 20140414, end: 20140414

REACTIONS (5)
  - Abdominal pain upper [None]
  - Diarrhoea [None]
  - Vomiting [None]
  - Oral discomfort [None]
  - Anorectal discomfort [None]

NARRATIVE: CASE EVENT DATE: 20140414
